FAERS Safety Report 7503580-2 (Version None)
Quarter: 2011Q2

REPORT INFORMATION
  Report Type: 
  Country: None (occurrence: None)
  Receive Date: 20110525
  Receipt Date: 20110512
  Transmission Date: 20111010
  Serious: Yes (Hospitalization)
  Sender: FDA-Public Use
  Company Number: JP-SANOFI-AVENTIS-2010SA077934

PATIENT
  Age: 54 Year
  Sex: Female
  Weight: 43 kg

DRUGS (32)
  1. ANTI-THYMOCYTE GLOBULIN NOS [Suspect]
     Route: 042
     Dates: start: 20100312, end: 20100313
  2. GRANISETRON HCL [Concomitant]
     Dates: start: 20100310, end: 20100317
  3. ACYCLOVIR [Concomitant]
     Dates: start: 20100312, end: 20100625
  4. DILTIAZEM HCL [Concomitant]
     Dates: start: 20100319, end: 20100322
  5. MAGNESIUM SULFATE [Concomitant]
     Dates: start: 20100322, end: 20100430
  6. METHYLPREDNISOLONE SODIUM SUCCINATE [Concomitant]
  7. FLUDARABINE PHOSPHATE [Suspect]
     Indication: STEM CELL TRANSPLANT
     Dosage: 42 MG ONCE
     Route: 065
     Dates: start: 20100314, end: 20100317
  8. URSODIOL [Concomitant]
     Dates: start: 20100101, end: 20100620
  9. TACROLIMUS [Concomitant]
     Dates: start: 20100318, end: 20110425
  10. METHOTREXATE [Concomitant]
     Dates: start: 20100320, end: 20100330
  11. PLATELETS [Concomitant]
     Dates: start: 20090222, end: 20100414
  12. FLUDARABINE PHOSPHATE [Suspect]
     Dosage: 42 MG ONCE
     Route: 065
     Dates: start: 20100314, end: 20100317
  13. REBAMIPIDE [Concomitant]
     Dates: start: 20100312
  14. PREDNISOLONE [Concomitant]
     Dates: start: 20100314, end: 20100317
  15. ACETAMINOPHEN [Concomitant]
     Dates: start: 20100312, end: 20100421
  16. NICARDIPINE HYDROCHLORIDE [Concomitant]
     Dates: start: 20100322, end: 20100402
  17. INSULIN HUMAN [Concomitant]
     Dates: start: 20100322, end: 20100406
  18. CANDESARTAN CILEXETIL [Concomitant]
     Dates: start: 20100402, end: 20100415
  19. PENTAMIDINE ISETHIONATE [Concomitant]
     Dates: start: 20100501, end: 20100501
  20. RANITIDINE HYDROCHLORIDE [Concomitant]
     Dates: start: 20100312, end: 20100312
  21. HYDROXYZINE HYDROCHLORIDE [Concomitant]
     Dates: start: 20100316, end: 20100319
  22. FILGRASTIM [Concomitant]
     Dates: start: 20100326, end: 20100405
  23. RED BLOOD CELLS, CONCENTRATED [Concomitant]
     Dates: start: 20090224, end: 20100405
  24. VOGLIBOSE [Concomitant]
     Dates: start: 20090408
  25. SULFAMETHOXAZOLE AND TRIMETHOPRIM [Concomitant]
     Dates: start: 20100607
  26. MESNA [Concomitant]
     Dates: start: 20100314, end: 20100317
  27. CYCLOPHOSPHAMIDE [Concomitant]
     Dates: start: 20100314, end: 20100317
  28. AMLODIPINE BESYLATE [Concomitant]
     Dates: start: 20100330
  29. RABEPRAZOLE SODIUM [Concomitant]
     Dates: start: 20100322
  30. CHLORPHENIRAMINE MALEATE [Concomitant]
     Dates: start: 20100312, end: 20100312
  31. MICAFUNGIN SODIUM [Concomitant]
     Dates: start: 20100312, end: 20100329
  32. LEVOFLOXACIN [Concomitant]
     Dates: start: 20100306, end: 20100422

REACTIONS (14)
  - HYPOKALAEMIA [None]
  - HYPERURICAEMIA [None]
  - NAUSEA [None]
  - VOMITING [None]
  - STOMATITIS [None]
  - CYTOMEGALOVIRUS TEST POSITIVE [None]
  - DYSPNOEA [None]
  - HEADACHE [None]
  - ACUTE GRAFT VERSUS HOST DISEASE IN SKIN [None]
  - ASPERGILLUS TEST POSITIVE [None]
  - DIARRHOEA [None]
  - LIVER DISORDER [None]
  - PYREXIA [None]
  - CANDIDA TEST POSITIVE [None]
